FAERS Safety Report 21977742 (Version 1)
Quarter: 2023Q1

REPORT INFORMATION
  Report Type: Spontaneous
  Country: US (occurrence: US)
  Receive Date: 20230210
  Receipt Date: 20230210
  Transmission Date: 20230418
  Serious: Yes (Other)
  Sender: FDA-Public Use
  Company Number: US-drreddys-SPO/USA/23/0160766

PATIENT
  Age: 35 Year
  Sex: Female

DRUGS (2)
  1. ACCUTANE [Suspect]
     Active Substance: ISOTRETINOIN
     Indication: Product used for unknown indication
     Dosage: RMA ISSUE DATE: 05 AUGUST 2022 11:40:58 AM; 30 SEPTEMBER 2022 01:48:32 PM;28 OCTOBER 2022 03:28:17 P
  2. ACCUTANE [Suspect]
     Active Substance: ISOTRETINOIN
     Dosage: RMA ISSUE DATE: 02 SEPTEMBER 2022 11:32:42 AM

REACTIONS (1)
  - Depression [Unknown]
